FAERS Safety Report 5497100-4 (Version None)
Quarter: 2007Q4

REPORT INFORMATION
  Report Type: 
  Country: None (occurrence: None)
  Receive Date: 20071025
  Receipt Date: 20071017
  Transmission Date: 20080405
  Serious: Yes (Hospitalization)
  Sender: FDA-Public Use
  Company Number: MY-ASTRAZENECA-2007AP06555

PATIENT
  Age: 28000 Day
  Sex: Female
  Weight: 41 kg

DRUGS (3)
  1. SEROQUEL [Suspect]
     Indication: SCHIZOPHRENIA
     Dosage: 50 - 75 MG EVERY MORNING/ 100 MG EVERY NIGHT
     Route: 048
     Dates: start: 20070507, end: 20070605
  2. SEROQUEL [Suspect]
     Dosage: 50 - 100 MG TWICE PER DAY
     Route: 048
     Dates: start: 20070622, end: 20070703
  3. ATENOLOL [Concomitant]
     Indication: HYPERTENSION
     Route: 048
     Dates: start: 20050101, end: 20070917

REACTIONS (1)
  - NEUTROPENIA [None]
